FAERS Safety Report 9357030 (Version 2)
Quarter: 2013Q3

REPORT INFORMATION
  Report Type: Spontaneous
  Country: SE (occurrence: None)
  Receive Date: 20130617
  Receipt Date: 20130722
  Transmission Date: 20140515
  Serious: Yes (Death, Other)
  Sender: FDA-Public Use
  Company Number: 221913

PATIENT
  Age: 88 Year
  Sex: Male

DRUGS (7)
  1. INNOHEP [Suspect]
     Indication: THROMBOSIS
     Dosage: ONCE DAILY FOR ONE MONTH. THEN TAPPED DOWN TO 14000 IU
     Dates: start: 20120312, end: 20120324
  2. TROMBYL [Suspect]
     Indication: PRODUCT USED FOR UNKNOWN INDICATION
     Route: 048
     Dates: start: 20120315, end: 20120324
  3. PANODIL (PARACETAMOL) [Concomitant]
  4. OXASCAND (OXAZEPAM) [Concomitant]
  5. CITALOPRAM (CITALOPRAM) [Concomitant]
  6. MIRTAZAPIN (MIRTAZAPINE) [Concomitant]
  7. IMOVANDE (ZOPICLONE) [Concomitant]

REACTIONS (9)
  - Blood pressure systolic decreased [None]
  - Nausea [None]
  - Vomiting [None]
  - Shock haemorrhagic [None]
  - Incorrect drug administration duration [None]
  - Gastrointestinal haemorrhage [None]
  - General physical health deterioration [None]
  - Haemoglobin decreased [None]
  - Hypotension [None]
